FAERS Safety Report 9299031 (Version 2)
Quarter: 2013Q2

REPORT INFORMATION
  Report Type: Spontaneous
  Country: IT (occurrence: None)
  Receive Date: 20130515
  Receipt Date: 20130521
  Transmission Date: 20140414
  Serious: Yes (Hospitalization)
  Sender: FDA-Public Use
  Company Number: AUR-APL-2013-04022

PATIENT
  Age: 75 Year
  Sex: Female

DRUGS (11)
  1. LEVOFLOXACIN (LEVOFLOXACIN) [Suspect]
     Indication: PRODUCT USED FOR UNKNOWN INDICATION
     Dosage: (2 DOSAGE FORMS , 1 D) ORAL
     Route: 048
     Dates: start: 20130501, end: 20130504
  2. FLUIBROM [Suspect]
     Indication: COUGH
     Dosage: (1 DOSAGE FORMS, 1 D) , INHALATION
     Route: 055
     Dates: start: 20130501, end: 20130504
  3. COUMADIN (WARFARIN SODIUM) [Suspect]
     Indication: ATRIAL FIBRILLATION
     Dosage: (AS REQUIRED), ORAL
     Route: 048
     Dates: start: 19980101, end: 20130504
  4. CLENIL (BECLOMETASONE DIPROPIONATE) [Concomitant]
  5. BRONCOVALEAS (SALBUTAMOL) [Concomitant]
  6. LASIX (FUROSEMIDE) [Concomitant]
  7. ENAPREN {ENALAPRIL) [Concomitant]
  8. SIMVASTATIN (SIMVASTATIN) [Concomitant]
  9. EZATROL [Concomitant]
  10. IDEOS [LEKOVIT CA] [Concomitant]
  11. LASITONE [OSYROL-LASIX] [Concomitant]

REACTIONS (2)
  - Hypocoagulable state [None]
  - Drug interaction [None]
